FAERS Safety Report 18206272 (Version 1)
Quarter: 2020Q3

REPORT INFORMATION
  Report Type: Spontaneous
  Country: US (occurrence: US)
  Receive Date: 20200828
  Receipt Date: 20200828
  Transmission Date: 20201103
  Serious: No
  Sender: FDA-Public Use
  Company Number: US-SA-2020SA227047

PATIENT

DRUGS (2)
  1. TOUJEO MAX [Suspect]
     Active Substance: INSULIN GLARGINE
     Dosage: 50 IU, QD
     Route: 065
     Dates: start: 202008
  2. TOUJEO MAX [Suspect]
     Active Substance: INSULIN GLARGINE
     Indication: TYPE 2 DIABETES MELLITUS
     Dosage: 42 IU, QD
     Route: 065
     Dates: start: 20200708

REACTIONS (5)
  - Corneal disorder [Unknown]
  - Visual impairment [Unknown]
  - Wrong technique in device usage process [Unknown]
  - Product dose omission issue [Unknown]
  - Limb injury [Unknown]

NARRATIVE: CASE EVENT DATE: 202008
